FAERS Safety Report 17655688 (Version 1)
Quarter: 2020Q2

REPORT INFORMATION
  Report Type: Spontaneous
  Country: US (occurrence: US)
  Receive Date: 20200410
  Receipt Date: 20200410
  Transmission Date: 20200713
  Serious: Yes (Hospitalization)
  Sender: FDA-Public Use
  Company Number: None

PATIENT
  Sex: Female
  Weight: 58.51 kg

DRUGS (3)
  1. MENTOR SALINE HIGH PROFILE AND SMOOTH [Concomitant]
  2. WELLBUTRIN [Concomitant]
     Active Substance: BUPROPION HYDROCHLORIDE
  3. BETADINE [Suspect]
     Active Substance: POVIDONE-IODINE

REACTIONS (14)
  - Blood iron increased [None]
  - Hypokinesia [None]
  - Epistaxis [None]
  - Recalled product administered [None]
  - Pain in extremity [None]
  - Fatigue [None]
  - Blood calcium increased [None]
  - Body temperature fluctuation [None]
  - Nipple pain [None]
  - Tooth disorder [None]
  - Breast swelling [None]
  - Arthralgia [None]
  - Dizziness [None]
  - Lymphadenopathy [None]
